FAERS Safety Report 9481703 (Version 1)
Quarter: 2013Q3

REPORT INFORMATION
  Report Type: Spontaneous
  Country: CA (occurrence: CA)
  Receive Date: 20130828
  Receipt Date: 20130828
  Transmission Date: 20140515
  Serious: Yes (Death, Other)
  Sender: FDA-Public Use
  Company Number: CA-AMGEN-KDL210494

PATIENT
  Sex: 0

DRUGS (3)
  1. ENBREL [Suspect]
     Indication: RHEUMATOID ARTHRITIS
     Dosage: 25 MG, 2 TIMES/WK
     Route: 058
     Dates: start: 20050516, end: 20060607
  2. PREDNISONE [Concomitant]
  3. ADALIMUMAB [Concomitant]

REACTIONS (4)
  - Death [Fatal]
  - Myocardial infarction [Unknown]
  - Septic shock [Unknown]
  - Infection [Unknown]
